FAERS Safety Report 17459262 (Version 12)
Quarter: 2024Q1

REPORT INFORMATION
  Report Type: Spontaneous
  Country: IN (occurrence: IN)
  Receive Date: 20200226
  Receipt Date: 20240320
  Transmission Date: 20240410
  Serious: Yes (Other)
  Sender: FDA-Public Use
  Company Number: IN-PFIZER INC-2019531336

PATIENT
  Age: 50 Year
  Sex: Male

DRUGS (9)
  1. SUTENT [Suspect]
     Active Substance: SUNITINIB MALATE
     Indication: Metastatic renal cell carcinoma
     Dosage: 50 MG, CYCLIC (ONCE A DAY, 2 WEEKS ON AND 1 WEEK OFF)
     Route: 048
     Dates: start: 20191205
  2. SUTENT [Suspect]
     Active Substance: SUNITINIB MALATE
     Dosage: 50 MG, CYCLIC FOR 2 WEEKS ON 3 WEEK OFF
     Route: 048
  3. SUTENT [Suspect]
     Active Substance: SUNITINIB MALATE
     Dosage: 50 MG, CYCLIC FOR 10 DAYS ON 10 DAYS OFF
     Route: 048
  4. SUTENT [Suspect]
     Active Substance: SUNITINIB MALATE
     Dosage: 50 MG, CYCLIC (ONCE DAILY FOR 7 DAYS ON 7 DAYS OFF)
     Route: 048
  5. NEFROSAVE [Concomitant]
     Dosage: 1 DF, 1X/DAY
  6. LEVOTHYROXINE [Concomitant]
     Active Substance: LEVOTHYROXINE\LEVOTHYROXINE SODIUM
     Dosage: 100 UG, 1X/DAY
  7. ROSUVASTATIN CALCIUM [Concomitant]
     Active Substance: ROSUVASTATIN CALCIUM
     Dosage: 10 MG, DAILY - H/S
  8. CALCIROL [Concomitant]
     Dosage: SACHET ONCE IN 15 DAYS WITH MILK
  9. FEBUXOSTAT [Concomitant]
     Active Substance: FEBUXOSTAT
     Dosage: 40 MG, 1X/DAY

REACTIONS (26)
  - Gastric ulcer [Unknown]
  - Nephrolithiasis [Unknown]
  - Blood creatinine increased [Unknown]
  - Single functional kidney [Unknown]
  - Blood thyroid stimulating hormone increased [Unknown]
  - Diarrhoea [Unknown]
  - Mouth ulceration [Unknown]
  - Palmar-plantar erythrodysaesthesia syndrome [Unknown]
  - Fatigue [Unknown]
  - Decreased appetite [Unknown]
  - Hypertension [Unknown]
  - Nausea [Unknown]
  - Vomiting [Unknown]
  - Hypercholesterolaemia [Unknown]
  - Asthenia [Unknown]
  - Appetite disorder [Unknown]
  - Frequent bowel movements [Unknown]
  - Blood urea increased [Unknown]
  - Liver function test abnormal [Unknown]
  - Blood triglycerides increased [Unknown]
  - Amylase increased [Unknown]
  - Vitamin D abnormal [Unknown]
  - White blood cell count decreased [Unknown]
  - Low density lipoprotein increased [Unknown]
  - Off label use [Unknown]
  - Product use issue [Unknown]

NARRATIVE: CASE EVENT DATE: 20240127
